FAERS Safety Report 7894140-2 (Version None)
Quarter: 2011Q4

REPORT INFORMATION
  Report Type: 
  Country: None (occurrence: None)
  Receive Date: 20111104
  Receipt Date: 20111025
  Transmission Date: 20120403
  Serious: Yes (Hospitalization)
  Sender: FDA-Public Use
  Company Number: CHPA2011JP14671

PATIENT
  Age: 54 Year
  Sex: Female

DRUGS (2)
  1. PURSENNID [Suspect]
     Indication: CONSTIPATION
     Dosage: 2 DF, BID
     Route: 048
     Dates: start: 20111011, end: 20111011
  2. BARIUM [Suspect]
     Indication: BARIUM SWALLOW
     Dosage: UNK, UNK
     Route: 048
     Dates: start: 20111011, end: 20111011

REACTIONS (4)
  - VOMITING [None]
  - NAUSEA [None]
  - HEADACHE [None]
  - GASTROINTESTINAL HYPOMOTILITY [None]
